FAERS Safety Report 6138184-X (Version None)
Quarter: 2009Q1

REPORT INFORMATION
  Report Type: 
  Country: None (occurrence: None)
  Receive Date: 20090327
  Receipt Date: 20090327
  Transmission Date: 20090719
  Serious: Yes (Hospitalization)
  Sender: FDA-Public Use
  Company Number: None

PATIENT
  Sex: Female
  Weight: 49.2606 kg

DRUGS (2)
  1. TOPAMAX [Suspect]
     Indication: AFFECTIVE DISORDER
     Dosage: 26 DOSES OF 50MG PO
     Route: 048
     Dates: start: 20090123, end: 20090205
  2. DOXYCYCLINE 100MG BID [Suspect]
     Indication: ACNE
     Dosage: 26 DOSES OF 100MG PO
     Route: 048
     Dates: start: 20090123, end: 20090205

REACTIONS (1)
  - RASH [None]
